FAERS Safety Report 4786569-6 (Version None)
Quarter: 2005Q3

REPORT INFORMATION
  Report Type: 
  Country: None (occurrence: None)
  Receive Date: 20050927
  Receipt Date: 20050602
  Transmission Date: 20060218
  Serious: No
  Sender: FDA-Public Use
  Company Number: USA050699899

PATIENT
  Age: 11 Year
  Sex: Female

DRUGS (3)
  1. STRATTERA [Suspect]
     Dosage: 40 MG DAY
  2. ADDERALL XR 15 [Concomitant]
  3. RISPERDAL [Concomitant]

REACTIONS (2)
  - AGGRESSION [None]
  - HOSTILITY [None]
